FAERS Safety Report 10388854 (Version 1)
Quarter: 2014Q1

REPORT INFORMATION
  Report Type: Spontaneous
  Country: US (occurrence: None)
  Receive Date: 20140306
  Receipt Date: 20140306
  Transmission Date: 20141002
  Serious: Yes (Hospitalization, Other)
  Sender: FDA-Public Use
  Company Number: 163-21880-13094290

PATIENT
  Age: 86 Year
  Sex: Female
  Weight: 52.5 kg

DRUGS (8)
  1. REVLIMID (LENALIDOMIDE) (5 MILLIGRAM, CAPSULES) [Suspect]
     Indication: PLASMA CELL MYELOMA
     Dosage: 5MG, 21 IN 28 D, PO
     Route: 048
     Dates: start: 201202
  2. REVLIMID (LENALIDOMIDE) (5 MILLIGRAM, CAPSULES) [Suspect]
     Indication: BONE CANCER
     Dosage: 5MG, 21 IN 28 D, PO
     Route: 048
     Dates: start: 201202
  3. CARDIZEM (DILTIAZEM HYDROCHLORIDE) [Concomitant]
  4. FLONASE (FLUTICASONE PROPIONATE) (SPRAY (NOT INHALATION) [Concomitant]
  5. ASPIRIN (ACETYLSALICYLIC ACID) (CHEWABLE TABLET) [Concomitant]
  6. VITAMIN D3 (COLECALCIFEROL) [Concomitant]
  7. VELCADE (BORTEZOMIB) [Concomitant]
  8. LAX-PILLS (SENNOSIDE A+B) (PILL) [Concomitant]

REACTIONS (2)
  - Cardiac failure [None]
  - Palpitations [None]
